FAERS Safety Report 8620608-7 (Version None)
Quarter: 2012Q3

REPORT INFORMATION
  Report Type: 
  Country: None (occurrence: None)
  Receive Date: 20120824
  Receipt Date: 20120820
  Transmission Date: 20120928
  Serious: Yes (Hospitalization)
  Sender: FDA-Public Use
  Company Number: DE-BAXTER-2012BAX014929

PATIENT
  Age: 64 Year
  Sex: Male
  Weight: 80 kg

DRUGS (5)
  1. RITUXIMAB [Suspect]
     Route: 042
     Dates: start: 20110718
  2. FLUDARABINE PHOSPHATE [Suspect]
     Route: 042
     Dates: start: 20110719
  3. PREDNISOLONE [Concomitant]
     Route: 065
     Dates: start: 20120718
  4. CYCLOPHOSPHAMIDE [Suspect]
     Route: 042
     Dates: start: 20110719
  5. ACYCLOVIR [Concomitant]
     Dosage: 400 (UNIT NOT REPORTED)
     Route: 065
     Dates: start: 20120718

REACTIONS (1)
  - BACTERIAL INFECTION [None]
